FAERS Safety Report 4702220-5 (Version None)
Quarter: 2005Q2

REPORT INFORMATION
  Report Type: 
  Country: None (occurrence: None)
  Receive Date: 20050627
  Receipt Date: 20050621
  Transmission Date: 20051028
  Serious: Yes (Death)
  Sender: FDA-Public Use
  Company Number: 163-20785-05050331

PATIENT
  Age: 65 Year
  Sex: Male

DRUGS (5)
  1. THALOMID [Suspect]
     Indication: MULTIPLE MYELOMA
     Dosage: 200 MG, AT BEDTIME, ORAL
     Route: 048
     Dates: start: 20050419, end: 20050430
  2. LESCOL [Concomitant]
  3. ATENOLOL [Concomitant]
  4. ACETYLSALICYLIC ACID SRT [Concomitant]
  5. IMDUR [Concomitant]

REACTIONS (3)
  - CORONARY ARTERY DISEASE [None]
  - DISEASE PROGRESSION [None]
  - ISCHAEMIC CARDIOMYOPATHY [None]
